FAERS Safety Report 4929375-1 (Version None)
Quarter: 2006Q1

REPORT INFORMATION
  Report Type: 
  Country: None (occurrence: None)
  Receive Date: 20060224
  Receipt Date: 20060216
  Transmission Date: 20060701
  Serious: Yes (Other)
  Sender: FDA-Public Use
  Company Number: 2006023269

PATIENT
  Age: 60 Year
  Sex: Female

DRUGS (2)
  1. VFEND [Suspect]
     Indication: ASPERGILLOSIS
  2. BUDESONIDE [Suspect]
     Indication: ILL-DEFINED DISORDER

REACTIONS (5)
  - CATARACT [None]
  - CHOLELITHIASIS [None]
  - DIABETES MELLITUS [None]
  - DRUG INTERACTION [None]
  - OSTEOPOROSIS [None]
